FAERS Safety Report 8924211 (Version 2)
Quarter: 2013Q2

REPORT INFORMATION
  Report Type: Spontaneous
  Country: US (occurrence: US)
  Receive Date: 20121126
  Receipt Date: 20130422
  Transmission Date: 20140414
  Serious: Yes (Death)
  Sender: FDA-Public Use
  Company Number: US-GLAXOSMITHKLINE-A1002511A

PATIENT
  Age: 68 Year
  Sex: Female

DRUGS (3)
  1. ARIXTRA [Suspect]
     Indication: THROMBOSIS
     Dosage: 7.5MG UNKNOWN
     Route: 058
     Dates: start: 201205, end: 20121119
  2. BLOOD PRESSURE MEDICATION [Concomitant]
  3. UNKNOWN STOMACH MEDICATION [Concomitant]

REACTIONS (3)
  - Malignant neoplasm progression [Fatal]
  - Lung neoplasm malignant [Fatal]
  - Metastasis [Fatal]
